FAERS Safety Report 7685213-8 (Version None)
Quarter: 2011Q3

REPORT INFORMATION
  Report Type: 
  Country: None (occurrence: None)
  Receive Date: 20110816
  Receipt Date: 20110812
  Transmission Date: 20111222
  Serious: Yes (Life-Threatening)
  Sender: FDA-Public Use
  Company Number: GB-PFIZER INC-2011186743

PATIENT
  Age: 63 Year
  Sex: Female

DRUGS (1)
  1. SUTENT [Suspect]
     Indication: SARCOMA
     Dosage: 37.5 MG, UNK
     Route: 048
     Dates: start: 20110723, end: 20110731

REACTIONS (2)
  - HYPOGLYCAEMIA [None]
  - SYNCOPE [None]
